FAERS Safety Report 7930610-6 (Version None)
Quarter: 2011Q4

REPORT INFORMATION
  Report Type: 
  Country: None (occurrence: None)
  Receive Date: 20111121
  Receipt Date: 20111118
  Transmission Date: 20120403
  Serious: Yes (Other)
  Sender: FDA-Public Use
  Company Number: US-PFIZER INC-2011283363

PATIENT
  Sex: Male
  Weight: 69 kg

DRUGS (7)
  1. LIPITOR [Suspect]
     Indication: BLOOD CHOLESTEROL INCREASED
     Dosage: 20 MG, DAILY
  2. FOLIC ACID [Concomitant]
     Dosage: 1 MG,DAILY
  3. SYNTHROID [Concomitant]
     Dosage: 88 UG, DAILY
  4. PHENOBARBITAL [Concomitant]
     Dosage: 529.6 MG, 2X/DAY
  5. LIPITOR [Suspect]
     Indication: MYOCARDIAL INFARCTION
     Dosage: 10 MG, DAILY
  6. DIGOXIN [Concomitant]
     Dosage: 125 UG, DAILY
  7. ROXICET [Concomitant]
     Dosage: 5/325MG,3X/DAY

REACTIONS (1)
  - HAEMATOPOIETIC NEOPLASM [None]
